FAERS Safety Report 6032818-6 (Version None)
Quarter: 2009Q1

REPORT INFORMATION
  Report Type: 
  Country: None (occurrence: None)
  Receive Date: 20090105
  Receipt Date: 20080818
  Transmission Date: 20090719
  Serious: Yes (Hospitalization, Other)
  Sender: FDA-Public Use
  Company Number: US-001767

PATIENT
  Age: 73 Year
  Sex: Female

DRUGS (11)
  1. PROHANCE [Suspect]
     Indication: NEPHRECTOMY
     Dosage: 15ML QD
     Dates: start: 20080723, end: 20080723
  2. PROHANCE [Suspect]
     Indication: NUCLEAR MAGNETIC RESONANCE IMAGING
     Dosage: 15ML QD
     Dates: start: 20080723, end: 20080723
  3. PROTONIX [Concomitant]
  4. ALPRAZOLAM [Concomitant]
  5. CRESTOR [Concomitant]
  6. LISINOPRIL [Concomitant]
  7. PROCARDIA [Concomitant]
  8. MICARDIS [Concomitant]
  9. ISOSORBIDE (ISOSORBIDE) [Concomitant]
  10. TOPROL-XL [Concomitant]
  11. BENADRYL [Concomitant]

REACTIONS (1)
  - ANAPHYLACTIC REACTION [None]
